FAERS Safety Report 15964955 (Version 1)
Quarter: 2019Q1

REPORT INFORMATION
  Report Type: Report from Study
  Country: IT (occurrence: IT)
  Receive Date: 20190215
  Receipt Date: 20190215
  Transmission Date: 20190418
  Serious: Yes (Other)
  Sender: FDA-Public Use
  Company Number: IT-ACCORD-107335

PATIENT
  Age: 80 Year
  Sex: Female
  Weight: 75 kg

DRUGS (6)
  1. PANTOPRAZOLE [Concomitant]
     Active Substance: PANTOPRAZOLE
  2. METHYLPREDNISOLONE. [Concomitant]
     Active Substance: METHYLPREDNISOLONE
  3. OXYCODONE [Concomitant]
     Active Substance: OXYCODONE
  4. CEFTRIAXONE. [Concomitant]
     Active Substance: CEFTRIAXONE
  5. FUROSEMIDE. [Suspect]
     Active Substance: FUROSEMIDE
     Indication: HYPERTENSION
     Route: 048
     Dates: start: 20180501
  6. CANRENOIC ACID [Concomitant]
     Active Substance: CANRENOIC ACID

REACTIONS (1)
  - Electrocardiogram QT prolonged [Unknown]

NARRATIVE: CASE EVENT DATE: 20180503
